FAERS Safety Report 8136278-0 (Version None)
Quarter: 2012Q1

REPORT INFORMATION
  Report Type: 
  Country: None (occurrence: None)
  Receive Date: 20120210
  Receipt Date: 20120131
  Transmission Date: 20120608
  Serious: Yes (Hospitalization)
  Sender: FDA-Public Use
  Company Number: DSJ-2012-01953

PATIENT
  Age: 50 Year
  Sex: Female

DRUGS (7)
  1. SERTRALINE HYDROCHLORIDE [Suspect]
     Indication: DEPRESSION
     Dosage: 50 MG, PER ORAL
     Route: 048
     Dates: start: 20111201
  2. CLOXAZOLAM (CLOXAZOLAM) (CLOXAZOLAM) [Concomitant]
  3. BENICAR HCT [Suspect]
     Indication: HYPERTENSION
     Dosage: 20/12.5MG (1 IN 1 D), PER ORAL
     Route: 048
     Dates: start: 20100101
  4. CLONAZEPAM [Suspect]
     Indication: DEPRESSION
     Dosage: 2 MG, PER ORAL
     Route: 048
     Dates: start: 20111201
  5. PREDNISONE [Suspect]
     Indication: PULMONARY SARCOIDOSIS
     Dosage: UNKNOWN, PER ORAL
     Route: 048
     Dates: start: 20110101, end: 20111201
  6. LEVOTHYROXINE SODIUM [Concomitant]
  7. DEFLAZACORT (DEFLAZACORT) (DEFLAZACORT) [Suspect]
     Indication: PULMONARY SARCOIDOSIS
     Dosage: 30 MG, PER ORAL
     Route: 048
     Dates: start: 20111201

REACTIONS (11)
  - NERVOUSNESS [None]
  - DRUG INEFFECTIVE [None]
  - BLOOD PRESSURE INCREASED [None]
  - PULMONARY SARCOIDOSIS [None]
  - DEPRESSION [None]
  - HYPERGLYCAEMIA [None]
  - ANXIETY [None]
  - TACHYCARDIA [None]
  - SOMNOLENCE [None]
  - HYPOTENSION [None]
  - FLUID RETENTION [None]
